FAERS Safety Report 4512339-X (Version None)
Quarter: 2004Q4

REPORT INFORMATION
  Report Type: 
  Country: None (occurrence: None)
  Receive Date: 20041123
  Receipt Date: 20041109
  Transmission Date: 20050328
  Serious: Yes (Life-Threatening)
  Sender: FDA-Public Use
  Company Number: 2004AP05710

PATIENT
  Age: 60 Year
  Sex: Male

DRUGS (5)
  1. IRESSA [Suspect]
     Indication: NON-SMALL CELL LUNG CANCER
     Dosage: 250 MG DAILY PO
     Route: 048
     Dates: start: 20031002
  2. TAXOL [Suspect]
     Indication: NEOPLASM
     Dosage: 180 MG DAILY
     Dates: start: 20030731, end: 20030829
  3. MUCOSTA [Concomitant]
  4. ALLOPURINOL TAB [Concomitant]
  5. LOXONIN [Concomitant]

REACTIONS (11)
  - CSF CELL COUNT INCREASED [None]
  - CSF PROTEIN INCREASED [None]
  - DEMENTIA [None]
  - DISORIENTATION [None]
  - ENCEPHALITIS [None]
  - METASTASES TO BONE [None]
  - METASTASES TO CENTRAL NERVOUS SYSTEM [None]
  - METASTASES TO MENINGES [None]
  - NEUROPATHY PERIPHERAL [None]
  - NUCLEAR MAGNETIC RESONANCE IMAGING BRAIN ABNORMAL [None]
  - PARANEOPLASTIC SYNDROME [None]
